FAERS Safety Report 16943786 (Version 1)
Quarter: 2019Q4

REPORT INFORMATION
  Report Type: Spontaneous
  Country: US (occurrence: US)
  Receive Date: 20191022
  Receipt Date: 20191022
  Transmission Date: 20200122
  Serious: No
  Sender: FDA-Public Use
  Company Number: US-JNJFOC-20191008811

PATIENT
  Age: 10 Month
  Sex: Male

DRUGS (3)
  1. INFANTS TYLENOL [Suspect]
     Active Substance: ACETAMINOPHEN
     Indication: PYREXIA
     Dosage: 5 ML EVERY NIGHT
     Route: 048
     Dates: start: 20190926
  2. INFANTS TYLENOL [Suspect]
     Active Substance: ACETAMINOPHEN
     Indication: TEETHING
  3. AMOXICILLIN. [Concomitant]
     Active Substance: AMOXICILLIN
     Indication: PRODUCT USED FOR UNKNOWN INDICATION
     Dosage: AT 8AM
     Route: 065

REACTIONS (1)
  - Oral mucosal eruption [Recovered/Resolved]

NARRATIVE: CASE EVENT DATE: 20190926
